FAERS Safety Report 10203002 (Version 2)
Quarter: 2014Q2

REPORT INFORMATION
  Report Type: Spontaneous
  Country: US (occurrence: US)
  Receive Date: 20140528
  Receipt Date: 20140611
  Transmission Date: 20141212
  Serious: No
  Sender: FDA-Public Use
  Company Number: US-009507513-1405USA013665

PATIENT
  Sex: Female
  Weight: 117.91 kg

DRUGS (3)
  1. MIRALAX [Suspect]
     Indication: INFREQUENT BOWEL MOVEMENTS
     Dosage: 17 G, QD
     Route: 048
     Dates: start: 201403
  2. NORCO [Concomitant]
     Indication: ANAL FISSURE
     Dosage: UNK, UNKNOWN
  3. NORCO [Concomitant]
     Indication: ANAL ABSCESS

REACTIONS (2)
  - Incorrect drug administration duration [Unknown]
  - Product taste abnormal [Unknown]
